FAERS Safety Report 9927853 (Version 2)
Quarter: 2014Q1

REPORT INFORMATION
  Report Type: Report from Study
  Country: CA (occurrence: CA)
  Receive Date: 20140227
  Receipt Date: 20140306
  Transmission Date: 20141002
  Serious: Yes (Hospitalization)
  Sender: FDA-Public Use
  Company Number: CA-JNJFOC-20140216640

PATIENT
  Age: 69 Year
  Sex: Female
  Weight: 66 kg

DRUGS (12)
  1. REMICADE [Suspect]
     Indication: RHEUMATOID ARTHRITIS
     Route: 042
     Dates: end: 201402
  2. REMICADE [Suspect]
     Indication: RHEUMATOID ARTHRITIS
     Route: 042
     Dates: start: 20130930
  3. REMICADE [Suspect]
     Indication: RHEUMATOID ARTHRITIS
     Route: 042
     Dates: start: 20080306
  4. CRESTOR [Concomitant]
     Route: 065
  5. METHOTREXATE [Concomitant]
     Route: 065
  6. PLAVIX [Concomitant]
     Route: 065
  7. METOPROLOL [Concomitant]
     Route: 065
  8. FOLIC ACID [Concomitant]
     Route: 065
  9. NORVASC [Concomitant]
     Route: 065
  10. ASA [Concomitant]
     Route: 065
  11. CALCIUM [Concomitant]
     Route: 065
  12. VITAMIN D [Concomitant]
     Route: 065

REACTIONS (2)
  - Hepatic cyst [Unknown]
  - Liver abscess [Recovering/Resolving]
